FAERS Safety Report 19281493 (Version 2)
Quarter: 2021Q3

REPORT INFORMATION
  Report Type: Spontaneous
  Country: US (occurrence: US)
  Receive Date: 20210521
  Receipt Date: 20210716
  Transmission Date: 20211014
  Serious: Yes (Hospitalization)
  Sender: FDA-Public Use
  Company Number: US-NOVOPROD-812750

PATIENT
  Sex: Female
  Weight: 95.1 kg

DRUGS (26)
  1. AMLODIPINE [Concomitant]
     Active Substance: AMLODIPINE BESYLATE
     Indication: PRODUCT USED FOR UNKNOWN INDICATION
     Dosage: 5 MG, QD
     Route: 048
  2. ASPIRIN 81 [Concomitant]
     Active Substance: ASPIRIN
     Indication: PRODUCT USED FOR UNKNOWN INDICATION
     Dosage: 81 MG, QD (1 TABLET BY MOUTH ONCE DAILY FOR 21 DAYS)
     Route: 048
  3. CARVEDILOL. [Concomitant]
     Active Substance: CARVEDILOL
     Indication: PRODUCT USED FOR UNKNOWN INDICATION
     Dosage: 25 MG, BID (WITH MEALS)
     Route: 048
  4. VITAMIN B COMPLEX [Concomitant]
     Active Substance: CYANOCOBALAMIN\DEXPANTHENOL\NIACINAMIDE\PYRIDOXINE HYDROCHLORIDE\RIBOFLAVIN 5^-PHOSPHATE SODIUM\THIAMINE HYDROCHLORIDE\VITAMIN B COMPLEX
     Indication: PRODUCT USED FOR UNKNOWN INDICATION
     Dosage: 1 CAPSULE BY MOUTH DAILY
     Route: 048
  5. CHOLECALCIFEROL [Concomitant]
     Active Substance: CHOLECALCIFEROL
     Indication: PRODUCT USED FOR UNKNOWN INDICATION
     Dosage: 5000 IU, QD
     Route: 065
  6. CLOBETASOL 0.05% [Concomitant]
     Active Substance: CLOBETASOL
     Indication: PRODUCT USED FOR UNKNOWN INDICATION
     Dosage: APPLY TOPICALLY 2 TIMES A DAY
     Route: 061
  7. LEVOTHYROXINE. [Concomitant]
     Active Substance: LEVOTHYROXINE
     Indication: PRODUCT USED FOR UNKNOWN INDICATION
     Dosage: 50 MG, QD
     Route: 048
  8. MARIJUANA [Concomitant]
     Active Substance: CANNABIS SATIVA SUBSP. INDICA TOP
     Indication: PRODUCT USED FOR UNKNOWN INDICATION
     Dosage: INHALE 1 PUFF AS NEEDED
     Route: 065
  9. ALBUTEROL HFA [Concomitant]
     Active Substance: ALBUTEROL SULFATE
     Indication: WHEEZING
     Dosage: 2 PUFFS EVERY 4 (FOUR) HOURS AS NEEDED
     Route: 065
  10. INSULIN LISPRO [Concomitant]
     Active Substance: INSULIN LISPRO
     Indication: PRODUCT USED FOR UNKNOWN INDICATION
     Dosage: 0?12 UNITS TID WITH MEALS
     Route: 058
  11. LANTUS [Concomitant]
     Active Substance: INSULIN GLARGINE
     Indication: PRODUCT USED FOR UNKNOWN INDICATION
     Dosage: 45 TO 50 UNITS TWICE DAILY
     Route: 058
  12. CINNAMON BARK [Concomitant]
     Active Substance: CINNAMON\HERBALS
     Indication: PRODUCT USED FOR UNKNOWN INDICATION
     Dosage: 500 MG CAPSULE
     Route: 065
  13. CYCLOBENZAPRINE. [Concomitant]
     Active Substance: CYCLOBENZAPRINE
     Indication: MUSCLE SPASMS
     Dosage: 10 MG, BID (AS NEEDED)
     Route: 048
  14. FERROUS SULFATE. [Concomitant]
     Active Substance: FERROUS SULFATE
     Indication: PRODUCT USED FOR UNKNOWN INDICATION
     Dosage: 325 MG, QD (WITH BREAKFAST)
     Route: 048
  15. ACETAMINOPHEN W/OXYCODONE [Concomitant]
     Active Substance: ACETAMINOPHEN\OXYCODONE HYDROCHLORIDE
     Indication: PAIN
     Dosage: TAKE 1 TABLET BY MOUTH EVERY 6 (SIX) HOURS AS NEEDED
     Route: 048
  16. LANTUS [Concomitant]
     Active Substance: INSULIN GLARGINE
     Dosage: 42 IU, QD (NIGHTLY)
     Route: 058
  17. NOVOLOG [Suspect]
     Active Substance: INSULIN ASPART
     Indication: TYPE 2 DIABETES MELLITUS
     Dosage: 6 UNITS BEFORE MEAL
     Route: 058
  18. LANTUS [Concomitant]
     Active Substance: INSULIN GLARGINE
     Dosage: 40 IU, QD (NIGHTLY)
     Route: 058
  19. ECHINACEA ANGUSTIFOLIA [Concomitant]
     Active Substance: ECHINACEA ANGUSTIFOLIA
     Indication: PRODUCT USED FOR UNKNOWN INDICATION
     Dosage: 400MG
     Route: 065
  20. LISINOPRIL. [Concomitant]
     Active Substance: LISINOPRIL
     Indication: PRODUCT USED FOR UNKNOWN INDICATION
     Dosage: 40 MG, QD
     Route: 048
  21. THERAGRAN [VITAMINS NOS] [Concomitant]
     Indication: PRODUCT USED FOR UNKNOWN INDICATION
     Dosage: DAILY
     Route: 065
  22. NOVOLOG [Suspect]
     Active Substance: INSULIN ASPART
     Dosage: SLIDING SCALE TID WITH MEALS
     Route: 058
  23. NOVOLOG [Suspect]
     Active Substance: INSULIN ASPART
     Dosage: 35 TO 40 UNITS TWICE DAILY WITH MEALS
     Route: 058
  24. ATORVASTATIN [Concomitant]
     Active Substance: ATORVASTATIN
     Indication: PRODUCT USED FOR UNKNOWN INDICATION
     Dosage: 80 MG, QD (NIGHTLY)
     Route: 048
  25. CARVEDILOL. [Concomitant]
     Active Substance: CARVEDILOL
     Dosage: 12.5 MG, QD (NIGHTLY)
     Route: 048
  26. GABAPENTIN. [Concomitant]
     Active Substance: GABAPENTIN
     Indication: PRODUCT USED FOR UNKNOWN INDICATION
     Dosage: TAKE 1 200 MG CAPSULE BID AND 2 CAPSULES AT BEDTIME
     Route: 048

REACTIONS (18)
  - Spinal stenosis [Unknown]
  - Urinary tract infection [Unknown]
  - Non-pitting oedema [Unknown]
  - Diarrhoea [Recovered/Resolved]
  - Seizure [Recovering/Resolving]
  - Vascular encephalopathy [Unknown]
  - Cholelithiasis [Unknown]
  - Muscular weakness [Unknown]
  - Transient ischaemic attack [Recovering/Resolving]
  - Spinal osteoarthritis [Unknown]
  - Vertebral foraminal stenosis [Unknown]
  - Gastrointestinal wall thickening [Unknown]
  - Stress urinary incontinence [Unknown]
  - Blood glucose increased [Unknown]
  - Glycosylated haemoglobin increased [Unknown]
  - Hypertensive emergency [Unknown]
  - Pyrexia [Recovered/Resolved]
  - Cerebrovascular accident [Unknown]

NARRATIVE: CASE EVENT DATE: 2021
